FAERS Safety Report 10573110 (Version 1)
Quarter: 2014Q4

REPORT INFORMATION
  Report Type: Spontaneous
  Country: US (occurrence: None)
  Receive Date: 20141106
  Receipt Date: 20141106
  Transmission Date: 20150529
  Serious: Yes (Other)
  Sender: FDA-Public Use
  Company Number: 2014-20624

PATIENT
  Age: 86 Year
  Sex: Female

DRUGS (5)
  1. EYLEA [Suspect]
     Active Substance: AFLIBERCEPT
     Indication: NEOVASCULAR AGE-RELATED MACULAR DEGENERATION
     Route: 031
  2. AREDSAN (CALCIUM ASCORBATE, COPPER SULFATE, DL-ALPHA TOCOPHEROL, FISH OIL, XANTOFYL ZEAXANTIN, ZINC SULFATE)? [Concomitant]
  3. CALCIUM (CALCIUM) [Concomitant]
     Active Substance: CALCIUM
  4. HYDROCHLOROTHIAZIDE (HYDROCHLOROTHIAZIDE) [Concomitant]
     Active Substance: HYDROCHLOROTHIAZIDE
  5. BIOTIN (BIOTIN) [Concomitant]

REACTIONS (2)
  - Dry age-related macular degeneration [None]
  - Retinal degeneration [None]
